FAERS Safety Report 7568295-3 (Version None)
Quarter: 2011Q2

REPORT INFORMATION
  Report Type: 
  Country: None (occurrence: None)
  Receive Date: 20110623
  Receipt Date: 20110617
  Transmission Date: 20111010
  Serious: Yes (Life-Threatening, Hospitalization, Other)
  Sender: FDA-Public Use
  Company Number: JP-ROCHE-756662

PATIENT
  Sex: Male
  Weight: 53 kg

DRUGS (8)
  1. LEVOFLOXACIN [Suspect]
     Indication: BRONCHITIS
     Route: 048
     Dates: start: 20110114, end: 20110117
  2. VITAMEDIN [Concomitant]
     Route: 053
     Dates: start: 20090325, end: 20110117
  3. WARFARIN SODIUM [Suspect]
     Indication: THROMBOSIS PROPHYLAXIS
     Route: 048
     Dates: start: 20090325, end: 20110121
  4. SELBEX [Concomitant]
     Route: 048
     Dates: start: 20090325, end: 20110117
  5. AMOBAN [Concomitant]
     Route: 048
     Dates: start: 20090325, end: 20110117
  6. PEGASYS [Suspect]
     Indication: HEPATITIS C
     Route: 058
     Dates: start: 20090325, end: 20110114
  7. ACINON [Concomitant]
     Route: 048
     Dates: start: 20090325, end: 20110117
  8. URSO 250 [Concomitant]
     Route: 048
     Dates: start: 20090325, end: 20110117

REACTIONS (5)
  - BRONCHITIS [None]
  - WHITE BLOOD CELL COUNT DECREASED [None]
  - PLEURAL EFFUSION [None]
  - PULMONARY ALVEOLAR HAEMORRHAGE [None]
  - PNEUMOTHORAX [None]
